FAERS Safety Report 10588316 (Version 1)
Quarter: 2014Q4

REPORT INFORMATION
  Report Type: Spontaneous
  Country: FR (occurrence: FR)
  Receive Date: 20141117
  Receipt Date: 20141117
  Transmission Date: 20150529
  Serious: Yes (Death, Life-Threatening, Hospitalization, Other)
  Sender: FDA-Public Use
  Company Number: FR-ASTRAZENECA-2014SE84898

PATIENT
  Age: 407 Month
  Sex: Female
  Weight: 42 kg

DRUGS (14)
  1. LERCAN [Concomitant]
     Active Substance: LERCANIDIPINE
  2. ATACAND [Concomitant]
     Active Substance: CANDESARTAN CILEXETIL
  3. RIVOTRIL [Concomitant]
     Active Substance: CLONAZEPAM
     Dosage: 40 DROPS PER DAY
  4. CORTANCYL [Concomitant]
     Active Substance: PREDNISONE
  5. AVLOCARDYL [Concomitant]
     Active Substance: PROPRANOLOL HYDROCHLORIDE
  6. ACTISKENAN [Concomitant]
     Active Substance: MORPHINE SULFATE
  7. ABATACEPT [Concomitant]
     Active Substance: ABATACEPT
     Dates: start: 2010, end: 2010
  8. DAFALGAN [Concomitant]
     Active Substance: ACETAMINOPHEN
  9. ARAVA [Interacting]
     Active Substance: LEFLUNOMIDE
     Route: 048
     Dates: start: 201403, end: 20141012
  10. METHOTREXATE [Interacting]
     Active Substance: METHOTREXATE
     Dosage: 2.8571 MG, 20 MG PER WEEK
     Route: 048
     Dates: start: 20141013, end: 20141027
  11. DUROGESIC [Concomitant]
     Active Substance: FENTANYL
  12. ADALIMUMAB [Concomitant]
     Active Substance: ADALIMUMAB
     Dates: start: 201311, end: 201403
  13. INEXIUM [Suspect]
     Active Substance: ESOMEPRAZOLE
     Route: 048
     Dates: end: 20141028
  14. ARAVA [Interacting]
     Active Substance: LEFLUNOMIDE
     Route: 048
     Dates: start: 2006, end: 2006

REACTIONS (18)
  - Cardiac arrest [Fatal]
  - Localised infection [Unknown]
  - Pseudomonas infection [Unknown]
  - General physical health deterioration [Unknown]
  - Diarrhoea [Unknown]
  - Malaise [Unknown]
  - Septic shock [Fatal]
  - Procalcitonin increased [Unknown]
  - Metabolic acidosis [Unknown]
  - Pyrexia [Fatal]
  - Odynophagia [Unknown]
  - Skin necrosis [Unknown]
  - Acute kidney injury [Fatal]
  - Multi-organ failure [Fatal]
  - Anaemia [Fatal]
  - Thrombocytopenia [Fatal]
  - Drug interaction [Fatal]
  - Pancytopenia [Fatal]

NARRATIVE: CASE EVENT DATE: 201410
